FAERS Safety Report 8172475-6 (Version None)
Quarter: 2012Q1

REPORT INFORMATION
  Report Type: 
  Country: None (occurrence: None)
  Receive Date: 20120227
  Receipt Date: 20120227
  Transmission Date: 20120608
  Serious: Yes (Death)
  Sender: FDA-Public Use
  Company Number: None

PATIENT
  Age: 66 Year
  Sex: Male

DRUGS (9)
  1. REVLIMID [Suspect]
     Indication: AMYLOIDOSIS
     Dosage: 15 MG DAILY X 21/28 DAYS BY MOUTH
     Route: 048
     Dates: start: 20110501, end: 20110901
  2. ONDANSETRON [Concomitant]
  3. ASPIRIN [Concomitant]
  4. METOLAZONE [Concomitant]
  5. DEXAMETHASONE [Concomitant]
  6. LEVOTHYROXINE SODIUM [Concomitant]
  7. ALKERAN [Concomitant]
  8. POTASSIUM CHLORIDE [Concomitant]
  9. FUROSEMIDE [Concomitant]

REACTIONS (10)
  - HAEMOTHORAX [None]
  - PNEUMOTHORAX [None]
  - WEIGHT DECREASED [None]
  - HAEMOGLOBIN DECREASED [None]
  - HYPOTENSION [None]
  - PLEURAL EFFUSION [None]
  - RESPIRATORY ARREST [None]
  - THROMBOCYTOPENIA [None]
  - LEFT VENTRICULAR HYPERTROPHY [None]
  - NEUTROPENIA [None]
